FAERS Safety Report 7077971-0 (Version None)
Quarter: 2010Q4

REPORT INFORMATION
  Report Type: 
  Country: None (occurrence: None)
  Receive Date: 20101101
  Receipt Date: 20101011
  Transmission Date: 20110411
  Serious: No
  Sender: FDA-Public Use
  Company Number: US-BAYER-201021578BCC

PATIENT
  Age: 41 Year
  Sex: Female
  Weight: 45 kg

DRUGS (1)
  1. ALEVE [Suspect]
     Dosage: TOTAL DAILY DOSE: 220 MG  UNIT DOSE: 220 MG
     Route: 048
     Dates: start: 20101011

REACTIONS (8)
  - DIARRHOEA [None]
  - DIZZINESS [None]
  - DYSPNOEA [None]
  - ERYTHEMA [None]
  - HYPERSENSITIVITY [None]
  - PRURITUS GENERALISED [None]
  - RASH GENERALISED [None]
  - VOMITING [None]
